FAERS Safety Report 14314939 (Version 1)
Quarter: 2017Q4

REPORT INFORMATION
  Report Type: Spontaneous
  Country: JP (occurrence: JP)
  Receive Date: 20171221
  Receipt Date: 20171221
  Transmission Date: 20180321
  Serious: Yes (Hospitalization, Other)
  Sender: FDA-Public Use
  Company Number: JP-MYLANLABS-2017M1078035

PATIENT
  Age: 74 Year
  Sex: Female

DRUGS (3)
  1. AMPI BIS PLUS [Suspect]
     Active Substance: AMPICILLIN SODIUM\SULBACTAM SODIUM
     Indication: FUSOBACTERIUM INFECTION
     Dosage: SINGLE DOSES, 3 G EVERY 8 HOURS
     Route: 065
  2. METHOTREXATE. [Suspect]
     Active Substance: METHOTREXATE
     Indication: RHEUMATOID ARTHRITIS
     Dosage: 6 MG/WEEK
     Route: 065
  3. PREDNISOLONE. [Suspect]
     Active Substance: PREDNISOLONE
     Indication: RHEUMATOID ARTHRITIS
     Dosage: 6 MG/DAY
     Route: 065

REACTIONS (11)
  - Renal failure [Recovered/Resolved]
  - Hypercoagulation [Recovering/Resolving]
  - Lemierre syndrome [Recovering/Resolving]
  - Disseminated intravascular coagulation [Recovering/Resolving]
  - Pancytopenia [Recovered/Resolved]
  - Nephritis [Recovered/Resolved]
  - Metabolic acidosis [Recovered/Resolved]
  - Thrombosis [Recovered/Resolved]
  - Pulmonary embolism [Recovering/Resolving]
  - Glucose tolerance impaired [Recovered/Resolved]
  - Laryngeal inflammation [Recovering/Resolving]
